FAERS Safety Report 4628029-9 (Version None)
Quarter: 2005Q2

REPORT INFORMATION
  Report Type: 
  Country: None (occurrence: None)
  Receive Date: 20050401
  Receipt Date: 20050318
  Transmission Date: 20051028
  Serious: Yes (Other)
  Sender: FDA-Public Use
  Company Number: C-05-0022

PATIENT
  Age: 16 Month
  Sex: Male

DRUGS (2)
  1. ANTISPASMODIC ELIXIR, MGP PRODUCT CODE 8009 [Suspect]
     Indication: DIARRHOEA
     Dosage: ORDERED 1 ML, ONCE, ADMINISTERED 5 ML, ONCE ORALLY
     Dates: start: 20050201
  2. AMOXICILLIN [Concomitant]

REACTIONS (4)
  - ACCIDENTAL OVERDOSE [None]
  - LETHARGY [None]
  - SLEEP DISORDER [None]
  - SOMNOLENCE [None]
